FAERS Safety Report 24721828 (Version 1)
Quarter: 2024Q4

REPORT INFORMATION
  Report Type: Spontaneous
  Country: US (occurrence: US)
  Receive Date: 20241211
  Receipt Date: 20241211
  Transmission Date: 20250115
  Serious: No
  Sender: QUAGEN PHARMACEUTICALS
  Company Number: US-QUAGEN-2024QUASPO00438

PATIENT

DRUGS (2)
  1. GLYCOPYRROLATE [Suspect]
     Active Substance: GLYCOPYRROLATE
     Indication: Hyperhidrosis
     Route: 065
  2. BOTOX [Concomitant]
     Active Substance: ONABOTULINUMTOXINA
     Indication: Hyperhidrosis
     Route: 065

REACTIONS (2)
  - Dry mouth [Unknown]
  - Product use in unapproved indication [Unknown]
